FAERS Safety Report 19108226 (Version 2)
Quarter: 2021Q2

REPORT INFORMATION
  Report Type: Spontaneous
  Country: CA (occurrence: CA)
  Receive Date: 20210408
  Receipt Date: 20210614
  Transmission Date: 20210717
  Serious: Yes (Death, Other)
  Sender: FDA-Public Use
  Company Number: CA-AMGEN-CANSP2021051330

PATIENT

DRUGS (71)
  1. CORTISONE ACETATE. [Suspect]
     Active Substance: CORTISONE ACETATE
     Dosage: UNK MILLIGRAM
     Route: 064
  2. PREDNISONE. [Suspect]
     Active Substance: PREDNISONE
     Indication: EXPOSURE DURING PREGNANCY
     Dosage: UNK
     Route: 064
  3. PSEUDOEPHEDRINE HYDROCHLORIDE. [Suspect]
     Active Substance: PSEUDOEPHEDRINE HYDROCHLORIDE
     Indication: EXPOSURE DURING PREGNANCY
     Dosage: UNK
     Route: 064
  4. REMICADE [Suspect]
     Active Substance: INFLIXIMAB
     Dosage: UNK
     Route: 064
  5. ACETAMINOPHEN. [Suspect]
     Active Substance: ACETAMINOPHEN
     Indication: EXPOSURE DURING PREGNANCY
     Dosage: UNK
     Route: 064
  6. ARAVA [Suspect]
     Active Substance: LEFLUNOMIDE
     Indication: EXPOSURE DURING PREGNANCY
     Dosage: UNK
     Route: 064
  7. FOLIC ACID. [Suspect]
     Active Substance: FOLIC ACID
     Dosage: UNK
     Route: 064
  8. FOSAMAX [Suspect]
     Active Substance: ALENDRONATE SODIUM
     Indication: EXPOSURE DURING PREGNANCY
     Dosage: UNK
     Route: 064
  9. KEVZARA [Suspect]
     Active Substance: SARILUMAB
     Indication: EXPOSURE DURING PREGNANCY
     Dosage: UNK
     Route: 064
  10. RITUXIMAB. [Suspect]
     Active Substance: RITUXIMAB
     Indication: EXPOSURE DURING PREGNANCY
     Dosage: UNK
     Route: 064
  11. SOLU?MEDROL [Suspect]
     Active Substance: METHYLPREDNISOLONE SODIUM SUCCINATE
     Indication: EXPOSURE DURING PREGNANCY
     Dosage: UNK
     Route: 064
  12. TOCILIZUMAB. [Suspect]
     Active Substance: TOCILIZUMAB
     Indication: EXPOSURE DURING PREGNANCY
     Dosage: UNK
     Route: 064
  13. XELJANZ [Suspect]
     Active Substance: TOFACITINIB CITRATE
     Dosage: UNK
     Route: 064
  14. ACETAMINOPHEN. [Concomitant]
     Active Substance: ACETAMINOPHEN
     Indication: EXPOSURE DURING PREGNANCY
     Route: 064
  15. LISINOPRIL. [Concomitant]
     Active Substance: LISINOPRIL
     Indication: EXPOSURE DURING PREGNANCY
     Dosage: UNK
     Route: 064
  16. ALENDRONATE SODIUM. [Suspect]
     Active Substance: ALENDRONATE SODIUM
     Indication: EXPOSURE DURING PREGNANCY
     Dosage: UNK
     Route: 064
  17. APO?PREDNISONE [Suspect]
     Active Substance: PREDNISONE
     Indication: EXPOSURE DURING PREGNANCY
     Dosage: UNK
     Route: 064
  18. DIPHENHYDRAMINE HYDROCHLORIDE. [Suspect]
     Active Substance: DIPHENHYDRAMINE HYDROCHLORIDE
     Indication: EXPOSURE DURING PREGNANCY
     Dosage: UNK
     Route: 064
  19. GOLIMUMAB [Suspect]
     Active Substance: GOLIMUMAB
     Indication: EXPOSURE DURING PREGNANCY
     Dosage: UNK
     Route: 064
  20. METHOTREXATE. [Suspect]
     Active Substance: METHOTREXATE
     Dosage: 25 MILLIGRAM
     Route: 064
  21. METHOTREXATE. [Suspect]
     Active Substance: METHOTREXATE
     Dosage: 20 MILLIGRAM
     Route: 064
  22. PREDNISONE. [Suspect]
     Active Substance: PREDNISONE
     Dosage: 25 MILLIGRAM
     Route: 064
  23. FOSAMAX [Suspect]
     Active Substance: ALENDRONATE SODIUM
     Dosage: UNK
     Route: 064
  24. HUMIRA [Suspect]
     Active Substance: ADALIMUMAB
     Dosage: 4 MILLIGRAM
     Route: 064
  25. LEFLUNOMIDE. [Suspect]
     Active Substance: LEFLUNOMIDE
     Indication: EXPOSURE DURING PREGNANCY
     Dosage: UNK
     Route: 064
  26. REMICADE [Suspect]
     Active Substance: INFLIXIMAB
     Dosage: UNK
     Route: 064
  27. RITUXIMAB. [Suspect]
     Active Substance: RITUXIMAB
     Dosage: UNK
     Route: 064
  28. CAFFEINE CITRATE. [Concomitant]
     Active Substance: CAFFEINE CITRATE
     Indication: EXPOSURE DURING PREGNANCY
     Dosage: UNK
     Route: 064
  29. ACTEMRA [Suspect]
     Active Substance: TOCILIZUMAB
     Indication: EXPOSURE DURING PREGNANCY
     Dosage: UNK
     Route: 064
  30. ALENDRONATE SODIUM;ALENDRONIC ACID [Suspect]
     Active Substance: ALENDRONIC ACID
     Indication: EXPOSURE DURING PREGNANCY
     Dosage: UNK
     Route: 064
  31. CETIRIZINE HYDROCHLORIDE AND PSEUDOEPHEDRINE HYDROCHLORIDE [Suspect]
     Active Substance: CETIRIZINE HYDROCHLORIDE\PSEUDOEPHEDRINE HYDROCHLORIDE
     Indication: EXPOSURE DURING PREGNANCY
     Dosage: UNK
     Route: 064
  32. CORTISONE ACETATE. [Suspect]
     Active Substance: CORTISONE ACETATE
     Indication: EXPOSURE DURING PREGNANCY
     Dosage: 25 MILLIGRAM
     Route: 064
  33. CORTISONE ACETATE. [Suspect]
     Active Substance: CORTISONE ACETATE
     Dosage: 25 MILLIGRAM
     Route: 064
  34. CORTISONE ACETATE. [Suspect]
     Active Substance: CORTISONE ACETATE
     Dosage: 25 MILLIGRAM
     Route: 064
  35. DESOXIMETASONE. [Suspect]
     Active Substance: DESOXIMETASONE
     Indication: EXPOSURE DURING PREGNANCY
     Dosage: UNK
     Route: 064
  36. FOLIC ACID. [Suspect]
     Active Substance: FOLIC ACID
     Indication: EXPOSURE DURING PREGNANCY
     Dosage: 1 MILLIGRAM
     Route: 064
  37. ORENCIA [Suspect]
     Active Substance: ABATACEPT
     Indication: EXPOSURE DURING PREGNANCY
     Dosage: UNK
     Route: 064
  38. ORENCIA [Suspect]
     Active Substance: ABATACEPT
     Dosage: UNK
     Route: 064
  39. ARAVA [Suspect]
     Active Substance: LEFLUNOMIDE
     Dosage: 20 MILLIGRAM
     Route: 064
  40. CETIRIZINE HYDROCHLORIDE. [Suspect]
     Active Substance: CETIRIZINE HYDROCHLORIDE
     Indication: EXPOSURE DURING PREGNANCY
     Dosage: UNK
     Route: 064
  41. ERELZI [Suspect]
     Active Substance: ETANERCEPT-SZZS
     Indication: EXPOSURE DURING PREGNANCY
     Dosage: UNK
     Route: 064
  42. FOLIC ACID. [Suspect]
     Active Substance: FOLIC ACID
     Dosage: UNK
     Route: 064
  43. FOSAMAX [Suspect]
     Active Substance: ALENDRONATE SODIUM
     Dosage: UNK
     Route: 064
  44. STELARA [Suspect]
     Active Substance: USTEKINUMAB
     Indication: EXPOSURE DURING PREGNANCY
     Dosage: UNK
     Route: 064
  45. SULFASALAZINE. [Suspect]
     Active Substance: SULFASALAZINE
     Indication: EXPOSURE DURING PREGNANCY
     Dosage: 500 MILLIGRAM
     Route: 064
  46. ADALIMUMAB [Suspect]
     Active Substance: ADALIMUMAB
     Indication: EXPOSURE DURING PREGNANCY
     Dosage: UNK
     Route: 064
  47. CETIRIZINE HYDROCHLORIDE. [Suspect]
     Active Substance: CETIRIZINE HYDROCHLORIDE
     Dosage: 10 MILLIGRAM
     Route: 064
  48. CORTISONE ACETATE. [Suspect]
     Active Substance: CORTISONE ACETATE
     Dosage: UNK MILLIGRAM
     Route: 064
  49. HUMIRA [Suspect]
     Active Substance: ADALIMUMAB
     Indication: EXPOSURE DURING PREGNANCY
     Dosage: 40 MILLIGRAM
     Route: 064
  50. HYDROXYCHLOROQUINE SULFATE. [Suspect]
     Active Substance: HYDROXYCHLOROQUINE SULFATE
     Indication: EXPOSURE DURING PREGNANCY
     Dosage: 400 MILLIGRAM
     Route: 064
  51. HYDROXYCHLOROQUINE SULFATE. [Suspect]
     Active Substance: HYDROXYCHLOROQUINE SULFATE
     Dosage: UNK
     Route: 064
  52. METHOTREXATE. [Suspect]
     Active Substance: METHOTREXATE
     Indication: EXPOSURE DURING PREGNANCY
     Dosage: UNK
     Route: 064
  53. METHOTREXATE. [Suspect]
     Active Substance: METHOTREXATE
     Dosage: 25 MILLIGRAM
     Route: 064
  54. PHTHALYLSULFATHIAZOLE [Suspect]
     Active Substance: PHTHALYLSULFATHIAZOLE
     Dosage: UNK
     Route: 064
  55. REMICADE [Suspect]
     Active Substance: INFLIXIMAB
     Indication: EXPOSURE DURING PREGNANCY
     Dosage: UNK
     Route: 064
  56. SIMPONI [Suspect]
     Active Substance: GOLIMUMAB
     Dosage: UNK
     Route: 064
  57. SULFASALAZINE. [Suspect]
     Active Substance: SULFASALAZINE
     Dosage: 1000 MILLIGRAM
     Route: 064
  58. SALAZOPYRIN [Concomitant]
     Active Substance: SULFASALAZINE
     Indication: EXPOSURE DURING PREGNANCY
     Dosage: UNK
     Route: 064
  59. VITAMIN D3 [Concomitant]
     Active Substance: CHOLECALCIFEROL
     Indication: EXPOSURE DURING PREGNANCY
     Dosage: UNK
     Route: 064
  60. ENBREL [Suspect]
     Active Substance: ETANERCEPT
     Indication: EXPOSURE DURING PREGNANCY
     Dosage: UNK
     Route: 064
  61. CIMZIA [Suspect]
     Active Substance: CERTOLIZUMAB PEGOL
     Indication: EXPOSURE DURING PREGNANCY
     Dosage: UNK
     Route: 064
  62. CORTISONE ACETATE. [Suspect]
     Active Substance: CORTISONE ACETATE
     Dosage: UNK MILLIGRAM
     Route: 064
  63. DICLOFENAC [Suspect]
     Active Substance: DICLOFENAC
     Indication: EXPOSURE DURING PREGNANCY
     Dosage: UNK
     Route: 064
  64. DICLOFENAC SODIUM. [Suspect]
     Active Substance: DICLOFENAC SODIUM
     Indication: EXPOSURE DURING PREGNANCY
     Dosage: UNK
     Route: 064
  65. FOLIC ACID. [Suspect]
     Active Substance: FOLIC ACID
     Dosage: UNK
     Route: 064
  66. HYDROXYCHLOROQUINE [Suspect]
     Active Substance: HYDROXYCHLOROQUINE
     Indication: EXPOSURE DURING PREGNANCY
     Dosage: UNK
     Route: 064
  67. PHTHALYLSULFATHIAZOLE [Suspect]
     Active Substance: PHTHALYLSULFATHIAZOLE
     Indication: EXPOSURE DURING PREGNANCY
     Dosage: UNK
     Route: 064
  68. SIMPONI [Suspect]
     Active Substance: GOLIMUMAB
     Indication: EXPOSURE DURING PREGNANCY
     Dosage: UNK
     Route: 064
  69. XELJANZ [Suspect]
     Active Substance: TOFACITINIB CITRATE
     Indication: EXPOSURE DURING PREGNANCY
     Dosage: UNK
     Route: 064
  70. CODEINE [Concomitant]
     Active Substance: CODEINE
     Indication: EXPOSURE DURING PREGNANCY
     Route: 064
  71. IBUPROFEN. [Concomitant]
     Active Substance: IBUPROFEN
     Indication: EXPOSURE DURING PREGNANCY
     Route: 064

REACTIONS (1)
  - Death neonatal [Fatal]
